FAERS Safety Report 9735567 (Version 2)
Quarter: 2015Q3

REPORT INFORMATION
  Report Type: Spontaneous
  Country: US (occurrence: US)
  Receive Date: 20131206
  Receipt Date: 20150804
  Transmission Date: 20151125
  Serious: No
  Sender: FDA-Public Use
  Company Number: US-GILEAD-2009-0023944

PATIENT
  Age: 65 Year
  Sex: Female

DRUGS (18)
  1. LANTUS [Concomitant]
     Active Substance: INSULIN GLARGINE
  2. SOMA [Concomitant]
     Active Substance: CARISOPRODOL
  3. DILTIAZEM HYDROCHLORIDE EXTENDED RELEASE [Concomitant]
     Active Substance: DILTIAZEM HYDROCHLORIDE
  4. TORADOL [Concomitant]
     Active Substance: KETOROLAC TROMETHAMINE
  5. PAROXETINE [Concomitant]
     Active Substance: PAROXETINE\PAROXETINE HYDROCHLORIDE
  6. AZATHIOPRINE. [Concomitant]
     Active Substance: AZATHIOPRINE
  7. SIMVASTATIN. [Concomitant]
     Active Substance: SIMVASTATIN
  8. CALCIUM [Concomitant]
     Active Substance: CALCIUM
  9. ZANTAC [Concomitant]
     Active Substance: RANITIDINE HYDROCHLORIDE
  10. NEXIUM [Concomitant]
     Active Substance: ESOMEPRAZOLE MAGNESIUM
  11. ATACAND [Concomitant]
     Active Substance: CANDESARTAN CILEXETIL
  12. LETAIRIS [Suspect]
     Active Substance: AMBRISENTAN
     Indication: PULMONARY ARTERIAL HYPERTENSION
     Route: 048
     Dates: start: 20090807, end: 20090824
  13. FEMARA [Concomitant]
     Active Substance: LETROZOLE
  14. ASPIRIN. [Concomitant]
     Active Substance: ASPIRIN
  15. DARVOCET-N 100 [Concomitant]
     Active Substance: ACETAMINOPHEN\PROPOXYPHENE NAPSYLATE
  16. LASIX [Concomitant]
     Active Substance: FUROSEMIDE
  17. METFORMIN [Concomitant]
     Active Substance: METFORMIN HYDROCHLORIDE
  18. BONIVA [Concomitant]
     Active Substance: IBANDRONATE SODIUM

REACTIONS (2)
  - Dyspnoea [Unknown]
  - Swelling [Unknown]
